FAERS Safety Report 22069886 (Version 1)
Quarter: 2023Q1

REPORT INFORMATION
  Report Type: Report from Study
  Country: US (occurrence: US)
  Receive Date: 20230307
  Receipt Date: 20230307
  Transmission Date: 20230418
  Serious: Yes (Death, Hospitalization)
  Sender: FDA-Public Use
  Company Number: US-MYLANLABS-2023M1024282

PATIENT
  Age: 55 Year
  Sex: Female

DRUGS (8)
  1. AMLODIPINE [Suspect]
     Active Substance: AMLODIPINE BESYLATE
     Indication: Product used for unknown indication
     Dosage: UNK
     Route: 065
  2. EPINEPHRINE [Suspect]
     Active Substance: EPINEPHRINE
     Indication: Toxicity to various agents
     Dosage: UNK
     Route: 065
  3. NOREPINEPHRINE [Suspect]
     Active Substance: NOREPINEPHRINE
     Indication: Toxicity to various agents
     Dosage: UNK
     Route: 065
  4. INSULIN NOS [Suspect]
     Active Substance: INSULIN NOS
     Indication: Toxicity to various agents
     Dosage: UNK, HIGH DOSE
     Route: 065
  5. DEXTROSE [Suspect]
     Active Substance: DEXTROSE
     Indication: Toxicity to various agents
     Dosage: UNK, }5%
     Route: 065
  6. PROPOFOL [Suspect]
     Active Substance: PROPOFOL
     Indication: Toxicity to various agents
     Dosage: UNK
     Route: 065
  7. VASOPRESSIN [Suspect]
     Active Substance: VASOPRESSIN
     Indication: Toxicity to various agents
     Dosage: UNK
     Route: 065
  8. ANGIOTENSIN II [Suspect]
     Active Substance: ANGIOTENSIN II
     Indication: Toxicity to various agents
     Dosage: UNK
     Route: 065

REACTIONS (10)
  - Toxicity to various agents [Fatal]
  - Coma [Fatal]
  - Respiratory depression [Fatal]
  - Hypotension [Fatal]
  - Bradycardia [Fatal]
  - Intestinal ischaemia [Fatal]
  - Metabolic acidosis [Fatal]
  - Thrombocytopenia [Fatal]
  - Drug ineffective [Fatal]
  - Off label use [Unknown]
